FAERS Safety Report 18855492 (Version 2)
Quarter: 2021Q1

REPORT INFORMATION
  Report Type: Report from Study
  Country: GB (occurrence: GB)
  Receive Date: 20210205
  Receipt Date: 20210212
  Transmission Date: 20210420
  Serious: Yes (Death, Hospitalization)
  Sender: FDA-Public Use
  Company Number: GB-JNJFOC-20210203886

PATIENT
  Age: 23 Year
  Sex: Female

DRUGS (1)
  1. VENTAVIS [Suspect]
     Active Substance: ILOPROST
     Indication: PULMONARY ARTERIAL HYPERTENSION

REACTIONS (4)
  - Death [Fatal]
  - Hospitalisation [Not Recovered/Not Resolved]
  - Pulmonary hypertension [Unknown]
  - Expired device used [Unknown]

NARRATIVE: CASE EVENT DATE: 20200423
